FAERS Safety Report 16880562 (Version 1)
Quarter: 2019Q4

REPORT INFORMATION
  Report Type: Spontaneous
  Country: US (occurrence: US)
  Receive Date: 20191002
  Receipt Date: 20191002
  Transmission Date: 20200122
  Serious: No
  Sender: FDA-Public Use
  Company Number: None

PATIENT
  Age: 65 Year
  Sex: Female

DRUGS (14)
  1. AIMOVIG [Suspect]
     Active Substance: ERENUMAB-AOOE
     Indication: MIGRAINE
     Dosage: ?          OTHER FREQUENCY:ONCE MONTHLY;?
     Route: 058
     Dates: start: 20190701
  2. ASPIRIN 81MG [Concomitant]
     Active Substance: ASPIRIN
  3. DIVALPROEX ER 50MG [Concomitant]
  4. TOPAMAX [Concomitant]
     Active Substance: TOPIRAMATE
  5. COENZYME Q10 [Concomitant]
     Active Substance: UBIDECARENONE
  6. IMITREX 100MG [Concomitant]
  7. SENNA 8.6MG [Concomitant]
  8. POLYETHYLENE GLYCOL 3350. [Concomitant]
     Active Substance: POLYETHYLENE GLYCOL 3350
  9. TUMERIC 500MG [Concomitant]
  10. VENLAFAXINE ER 150MG [Concomitant]
     Active Substance: VENLAFAXINE HYDROCHLORIDE
  11. VITAMIN B-12 1000MCG [Concomitant]
  12. VITAMIN D3 5,000 IU [Concomitant]
  13. LYRICA [Concomitant]
     Active Substance: PREGABALIN
  14. MULTIVITAMIN [Concomitant]
     Active Substance: VITAMINS

REACTIONS (1)
  - Constipation [None]

NARRATIVE: CASE EVENT DATE: 20191002
